FAERS Safety Report 5925927-0 (Version None)
Quarter: 2008Q3

REPORT INFORMATION
  Report Type: 
  Country: None (occurrence: None)
  Receive Date: 20080923
  Receipt Date: 20070809
  Transmission Date: 20090109
  Serious: Yes (Hospitalization)
  Sender: FDA-Public Use
  Company Number: WAES 0708USA02130

PATIENT

DRUGS (1)
  1. VYTORIN [Suspect]
     Dosage: 10-40 MG/PO
     Route: 048
     Dates: start: 20070101

REACTIONS (1)
  - JAUNDICE [None]
